FAERS Safety Report 6788111-7 (Version None)
Quarter: 2010Q2

REPORT INFORMATION
  Report Type: 
  Country: None (occurrence: None)
  Receive Date: 20100623
  Receipt Date: 20080917
  Transmission Date: 20101027
  Serious: Yes (Other)
  Sender: FDA-Public Use
  Company Number: US-PFIZER INC-2007085797

PATIENT
  Sex: Male
  Weight: 93 kg

DRUGS (6)
  1. SUTENT [Suspect]
     Indication: METASTATIC RENAL CELL CARCINOMA
     Dosage: 2 WEEKS THAN OFF 2 WEEKS
     Route: 048
     Dates: start: 20070608
  2. PROSCAR [Concomitant]
  3. STOOL SOFTENER [Concomitant]
  4. MULTI-VITAMINS [Concomitant]
  5. CALCIUM CARBONATE [Concomitant]
  6. NASONEX [Concomitant]

REACTIONS (5)
  - DERMATITIS ACNEIFORM [None]
  - EYELID OEDEMA [None]
  - GASTROOESOPHAGEAL REFLUX DISEASE [None]
  - PERIORBITAL OEDEMA [None]
  - SWELLING [None]
